FAERS Safety Report 17288974 (Version 1)
Quarter: 2020Q1

REPORT INFORMATION
  Report Type: Spontaneous
  Country: CN (occurrence: CN)
  Receive Date: 20200120
  Receipt Date: 20200120
  Transmission Date: 20200409
  Serious: Yes (Hospitalization)
  Sender: FDA-Public Use
  Company Number: CN-PFIZER INC-2020023262

PATIENT
  Age: 39 Year
  Sex: Female
  Weight: 64 kg

DRUGS (3)
  1. PHARMORUBICIN [Suspect]
     Active Substance: EPIRUBICIN
     Indication: NEOPLASM
     Dosage: 70 MG, 1X/DAY
     Route: 041
     Dates: start: 20191101, end: 20191101
  2. PHARMORUBICIN [Suspect]
     Active Substance: EPIRUBICIN
     Dosage: 80 MG, 1X/DAY
     Route: 041
     Dates: start: 20191102, end: 20191102
  3. ENDOXAN [CYCLOPHOSPHAMIDE] [Concomitant]
     Active Substance: CYCLOPHOSPHAMIDE
     Indication: NEOPLASM
     Dosage: 1000 MG, 1X/DAY
     Route: 041
     Dates: start: 20191101, end: 20191101

REACTIONS (1)
  - Hepatic function abnormal [Recovering/Resolving]

NARRATIVE: CASE EVENT DATE: 20191111
